FAERS Safety Report 7074147-8 (Version None)
Quarter: 2010Q4

REPORT INFORMATION
  Report Type: 
  Country: None (occurrence: None)
  Receive Date: 20101029
  Receipt Date: 20101020
  Transmission Date: 20110411
  Serious: Yes (Other)
  Sender: FDA-Public Use
  Company Number: JP-PFIZER INC-2010133443

PATIENT
  Age: 97 Year
  Sex: Female

DRUGS (1)
  1. LYRICA [Suspect]
     Dosage: 50 MG/DAY
     Dates: start: 20100914

REACTIONS (4)
  - BLOOD POTASSIUM DECREASED [None]
  - CREATININE RENAL CLEARANCE DECREASED [None]
  - DIARRHOEA [None]
  - OEDEMA PERIPHERAL [None]
